FAERS Safety Report 13184669 (Version 1)
Quarter: 2017Q1

REPORT INFORMATION
  Report Type: Report from Study
  Country: US (occurrence: US)
  Receive Date: 20170203
  Receipt Date: 20170203
  Transmission Date: 20170428
  Serious: Yes (Death, Other)
  Sender: FDA-Public Use
  Company Number: US-MYLANLABS-2017M1006135

PATIENT

DRUGS (10)
  1. RITUXIMAB [Suspect]
     Active Substance: RITUXIMAB
     Indication: BURKITT^S LEUKAEMIA
     Dosage: 375 MG/ME2 /DAY ON DAY 1 AND DAY 8
     Route: 042
  2. METHOTREXATE. [Suspect]
     Active Substance: METHOTREXATE
     Indication: BURKITT^S LEUKAEMIA
     Dosage: 3 G/ME2 OVER 2H, ON DAY 8
     Route: 042
  3. CYTARABINE. [Suspect]
     Active Substance: CYTARABINE
     Indication: BURKITT^S LEUKAEMIA
     Dosage: 100 MG ON DAY 1, DAY 4, DAY 8 AND ON DAY 11
     Route: 037
  4. CYCLOPHOSPHAMIDE. [Suspect]
     Active Substance: CYCLOPHOSPHAMIDE
     Indication: BURKITT^S LEUKAEMIA
     Dosage: 1500 MG/ME2/DAY, OVER 1 H, ON DAY 1
     Route: 042
  5. MESNA. [Suspect]
     Active Substance: MESNA
     Indication: BURKITT^S LEUKAEMIA
     Dosage: 900 MG/M 2 /DAY IN DIVIDED DOSES ON DAY 1
     Route: 042
  6. FILGRASTIM [Suspect]
     Active Substance: FILGRASTIM
     Indication: BURKITT^S LEUKAEMIA
     Dosage: 5 MICROG/KG/DAY
     Route: 058
  7. PREDNISONE. [Suspect]
     Active Substance: PREDNISONE
     Indication: BURKITT^S LEUKAEMIA
     Dosage: 100 MG/DAY ON DAYS 1-5
     Route: 048
  8. VINCRISTINE [Suspect]
     Active Substance: VINCRISTINE
     Indication: BURKITT^S LEUKAEMIA
     Dosage: 1.4 MG/M 2 /DAY (2MG CAP) IV PUSH, ON DAY 1
     Route: 042
  9. FOLINIC ACID [Suspect]
     Active Substance: LEUCOVORIN
     Indication: BURKITT^S LEUKAEMIA
     Dosage: RESCUE; 25 MG/ME2 EVERY 6H
     Route: 042
  10. CIPROFLOXACIN. [Concomitant]
     Active Substance: CIPROFLOXACIN
     Indication: ANTIBIOTIC PROPHYLAXIS
     Dosage: FROM DAY 8
     Route: 065

REACTIONS (1)
  - Neutropenic sepsis [Fatal]
